FAERS Safety Report 16019619 (Version 2)
Quarter: 2019Q1

REPORT INFORMATION
  Report Type: Spontaneous
  Country: DK (occurrence: DK)
  Receive Date: 20190228
  Receipt Date: 20190305
  Transmission Date: 20190418
  Serious: Yes (Death, Hospitalization, Other)
  Sender: FDA-Public Use
  Company Number: DK-GILEAD-2019-0392357

PATIENT
  Age: 82 Year
  Sex: Male

DRUGS (13)
  1. DIGOXIN. [Concomitant]
     Active Substance: DIGOXIN
     Indication: CARDIAC DISORDER
     Dosage: STYRKE: 62,5MG
     Route: 048
     Dates: start: 20140225
  2. TRAMADOL. [Concomitant]
     Active Substance: TRAMADOL
     Indication: PAIN
     Dosage: STYRKE: 7,5MG DOSIS: 1 TABLET EFTER BEHOV
     Route: 048
     Dates: start: 20161206
  3. ZYDELIG [Suspect]
     Active Substance: IDELALISIB
     Indication: CHRONIC LYMPHOCYTIC LEUKAEMIA
     Dosage: 300 MG
     Route: 048
     Dates: start: 201811, end: 20190118
  4. ALFUZOSIN [Concomitant]
     Active Substance: ALFUZOSIN
     Indication: DYSURIA
     Dosage: STYRKE: 10MG
     Route: 048
     Dates: start: 20151228
  5. APIXABAN [Concomitant]
     Active Substance: APIXABAN
     Indication: THROMBOSIS PROPHYLAXIS
     Dosage: STYRKE: 2,5MG
     Route: 048
     Dates: start: 20161007
  6. ATORVASTATIN [Concomitant]
     Active Substance: ATORVASTATIN
     Indication: HYPERCHOLESTEROLAEMIA
     Dosage: STYRKE: 20MG
     Route: 048
     Dates: start: 20160616
  7. ZOPICLONE [Concomitant]
     Active Substance: ZOPICLONE
     Indication: INSOMNIA
     Dosage: STYRKE: 7,5MG DOSIS: 1 TABLET EFTER BEHOV
     Route: 048
     Dates: start: 20161111
  8. METFORMIN [Concomitant]
     Active Substance: METFORMIN HYDROCHLORIDE
     Indication: TYPE 2 DIABETES MELLITUS
     Dosage: STYRKE: 850MG
     Route: 048
     Dates: start: 20160918
  9. VITAMIN B [Concomitant]
     Active Substance: VITAMIN B
     Indication: VITAMIN SUPPLEMENTATION
     Dosage: STYRKE: UKENDT
     Route: 048
     Dates: start: 20150729
  10. ALLOPURINOL. [Concomitant]
     Active Substance: ALLOPURINOL
     Indication: GOUTY ARTHRITIS
     Dosage: STYRKE: 100MG
     Route: 048
     Dates: start: 20131111
  11. POTASSIUM CHLORIDE. [Concomitant]
     Active Substance: POTASSIUM CHLORIDE
     Indication: MINERAL SUPPLEMENTATION
     Dosage: STYRKE: 750MG
     Route: 048
     Dates: start: 20160906
  12. FUROSEMIDE. [Concomitant]
     Active Substance: FUROSEMIDE
     Indication: DIURETIC THERAPY
     Dosage: STYRKE: 30MG
     Route: 048
     Dates: start: 20160912
  13. SULFAMETHOXAZOLE AND TRIMETHOPRIM [Concomitant]
     Active Substance: SULFAMETHOXAZOLE\TRIMETHOPRIM
     Indication: PNEUMOCYSTIS JIROVECII PNEUMONIA
     Dosage: STYRKE: 400MG/80MG
     Route: 048
     Dates: start: 20181108

REACTIONS (6)
  - Lung infiltration [Fatal]
  - C-reactive protein increased [Fatal]
  - Pleural effusion [Fatal]
  - Thoracic cavity drainage [Fatal]
  - Pneumonia [Fatal]
  - Productive cough [Fatal]

NARRATIVE: CASE EVENT DATE: 201811
